FAERS Safety Report 25866554 (Version 3)
Quarter: 2025Q4

REPORT INFORMATION
  Report Type: Spontaneous
  Country: US (occurrence: US)
  Receive Date: 20250930
  Receipt Date: 20251028
  Transmission Date: 20260118
  Serious: Yes (Hospitalization)
  Sender: BIOGEN
  Company Number: US-BIOGEN-2025BI01325384

PATIENT
  Age: 23 Year
  Sex: Male

DRUGS (2)
  1. SKYCLARYS [Suspect]
     Active Substance: OMAVELOXOLONE
     Indication: Friedreich^s ataxia
  2. SKYCLARYS [Suspect]
     Active Substance: OMAVELOXOLONE
     Dates: start: 20250304

REACTIONS (1)
  - Lower limb fracture [Unknown]
